FAERS Safety Report 4745560-6 (Version None)
Quarter: 2005Q3

REPORT INFORMATION
  Report Type: 
  Country: None (occurrence: None)
  Receive Date: 20050812
  Receipt Date: 20050804
  Transmission Date: 20060218
  Serious: Yes (Hospitalization)
  Sender: FDA-Public Use
  Company Number: HQWYE764308AUG05

PATIENT
  Age: 48 Year
  Sex: Male
  Weight: 64.1 kg

DRUGS (4)
  1. RAPAMUNE [Suspect]
     Indication: PROPHYLAXIS AGAINST TRANSPLANT REJECTION
     Dosage: 6 MG  1X PER 1 DAY, ORAL
     Route: 048
     Dates: start: 20050407
  2. MYCOPHENOLATE MOFETIL (MYCOPHENOLATE MOFETIL) [Concomitant]
  3. CORTICOSTEROIDS (CORTICOSTERODIS) [Concomitant]
  4. ZENAPAX [Concomitant]

REACTIONS (6)
  - DRUG INEFFECTIVE [None]
  - DRUG LEVEL BELOW THERAPEUTIC [None]
  - KIDNEY TRANSPLANT REJECTION [None]
  - NEPHRITIS INTERSTITIAL [None]
  - THERAPY NON-RESPONDER [None]
  - TRANSPLANT REJECTION [None]
